FAERS Safety Report 19268893 (Version 5)
Quarter: 2022Q2

REPORT INFORMATION
  Report Type: Spontaneous
  Country: CA (occurrence: CA)
  Receive Date: 20210517
  Receipt Date: 20220628
  Transmission Date: 20220721
  Serious: Yes (Hospitalization, Other)
  Sender: FDA-Public Use
  Company Number: CA-PFIZER INC-2021514646

PATIENT
  Age: 51 Year
  Sex: Female
  Weight: 61.4 kg

DRUGS (10)
  1. METHOTREXATE SODIUM [Suspect]
     Active Substance: METHOTREXATE SODIUM
     Dosage: 25 MG, WEEKLY
     Route: 058
     Dates: start: 201807, end: 202006
  2. METHOTREXATE SODIUM [Suspect]
     Active Substance: METHOTREXATE SODIUM
     Dosage: 20 MG, WEEKLY
     Route: 058
  3. HUMIRA [Concomitant]
     Active Substance: ADALIMUMAB
     Dosage: 40 MG, EVERY (Q) 2 WEEKS
     Route: 058
     Dates: start: 202006, end: 2021
  4. HUMIRA [Concomitant]
     Active Substance: ADALIMUMAB
     Dosage: 40 MG, WEEKLY
     Route: 058
  5. PREDNISONE [Concomitant]
     Active Substance: PREDNISONE
     Dosage: 12.5 MG, DAILY
     Dates: start: 202002
  6. PREDNISONE [Concomitant]
     Active Substance: PREDNISONE
     Dosage: 20 MG, DAILY
     Dates: start: 202104
  7. PREDNISONE [Concomitant]
     Active Substance: PREDNISONE
     Dosage: 12500 UG, DAILY
     Dates: start: 2021
  8. PREDNISONE [Concomitant]
     Active Substance: PREDNISONE
     Dosage: 12500 UG, DAILY
     Route: 065
  9. RITUXAN [Concomitant]
     Active Substance: RITUXIMAB
     Dosage: 2 DF, CYCLIC (1 CYCLE, 2 DOSES )
     Dates: start: 202001, end: 202001
  10. RITUXAN [Concomitant]
     Active Substance: RITUXIMAB
     Dosage: 1 CYCLE
     Dates: start: 202101, end: 202101

REACTIONS (13)
  - Malaise [Unknown]
  - Psoriatic arthropathy [Unknown]
  - Cutaneous vasculitis [Unknown]
  - Infection [Not Recovered/Not Resolved]
  - Drug ineffective [Unknown]
  - Oropharyngeal pain [Unknown]
  - Suspected COVID-19 [Unknown]
  - Rhinorrhoea [Unknown]
  - Cough [Unknown]
  - Headache [Unknown]
  - Off label use [Unknown]
  - Pain [Unknown]
  - Gait disturbance [Unknown]

NARRATIVE: CASE EVENT DATE: 20180701
